FAERS Safety Report 16651220 (Version 1)
Quarter: 2019Q3

REPORT INFORMATION
  Report Type: Spontaneous
  Country: US (occurrence: US)
  Receive Date: 20190731
  Receipt Date: 20190731
  Transmission Date: 20191004
  Serious: Yes (Death, Other)
  Sender: FDA-Public Use
  Company Number: US-AMGEN-USASP2019119845

PATIENT
  Sex: Male

DRUGS (6)
  1. FILGRASTIM [Suspect]
     Active Substance: FILGRASTIM
     Indication: HAEMATOPOIETIC STEM CELL MOBILISATION
     Dosage: UNK, (3 DAYS A WEEK)
     Route: 065
  2. THIOTEPA. [Concomitant]
     Active Substance: THIOTEPA
     Dosage: 10 MILLIGRAM/KILOGRAM (1 DOSE)
  3. FILGRASTIM [Suspect]
     Active Substance: FILGRASTIM
     Indication: NEUTROPENIA
  4. FLUDARABINE [Concomitant]
     Active Substance: FLUDARABINE PHOSPHATE
     Dosage: 40 MILLIGRAM/SQ. METER (4 DOSES)
  5. THYMOGLOBULIN [Concomitant]
     Active Substance: LAPINE T-LYMPHOCYTE IMMUNE GLOBULIN
     Dosage: 3 MILLIGRAM/KILOGRAM (3 DOSES)
  6. MELPHALAN. [Concomitant]
     Active Substance: MELPHALAN
     Dosage: 140 MILLIGRAM/SQ. METER (1 DOSE)

REACTIONS (7)
  - Off label use [Unknown]
  - B-lymphocyte count decreased [Unknown]
  - Acute respiratory distress syndrome [Fatal]
  - Blood immunoglobulin M decreased [Unknown]
  - Cytomegalovirus infection [Unknown]
  - Blood immunoglobulin A decreased [Unknown]
  - Polyserositis [Unknown]
